FAERS Safety Report 15012422 (Version 1)
Quarter: 2018Q2

REPORT INFORMATION
  Report Type: Spontaneous
  Country: GB (occurrence: GB)
  Receive Date: 20180614
  Receipt Date: 20180614
  Transmission Date: 20180711
  Serious: Yes (Other)
  Sender: FDA-Public Use
  Company Number: GB-MYLANLABS-2018M1041222

PATIENT
  Age: 79 Year
  Sex: Female

DRUGS (6)
  1. OLANZAPINE. [Suspect]
     Active Substance: OLANZAPINE
     Indication: PRODUCT USED FOR UNKNOWN INDICATION
     Dosage: 5 MG, BID
     Route: 065
  2. SERTRALINE [Concomitant]
     Active Substance: SERTRALINE HYDROCHLORIDE
     Indication: PRODUCT USED FOR UNKNOWN INDICATION
     Dosage: 150 MG, UNK
     Route: 065
  3. MEMANTINE. [Suspect]
     Active Substance: MEMANTINE
     Indication: MIXED DEMENTIA
     Dosage: 5 MG, UNK
     Route: 065
  4. LORAZEPAM. [Concomitant]
     Active Substance: LORAZEPAM
     Indication: PRODUCT USED FOR UNKNOWN INDICATION
     Dosage: 0.5 MG, UNK
     Route: 065
  5. QUETIAPINE. [Concomitant]
     Active Substance: QUETIAPINE
     Indication: MENTAL DISORDER
     Dosage: 50 MG, UNK
     Route: 065
  6. MEMANTINE. [Suspect]
     Active Substance: MEMANTINE
     Dosage: 10 MG, HS
     Route: 065

REACTIONS (2)
  - Bradycardia [Recovered/Resolved]
  - Drug effect incomplete [Unknown]
